FAERS Safety Report 14294072 (Version 1)
Quarter: 2017Q4

REPORT INFORMATION
  Report Type: Spontaneous
  Country: NL (occurrence: NL)
  Receive Date: 20171217
  Receipt Date: 20171217
  Transmission Date: 20180321
  Serious: Yes (Death)
  Sender: FDA-Public Use
  Company Number: NL-CIPLA LTD.-2017NL25157

PATIENT

DRUGS (1)
  1. ZOLEDRONIC ACID [Suspect]
     Active Substance: ZOLEDRONIC ACID
     Indication: PRODUCT USED FOR UNKNOWN INDICATION
     Dosage: 5 MG, Q12MO (POWDER AND SOLVENT FOR SOLUTION FOR INJECTION)
     Route: 065
     Dates: start: 20160111

REACTIONS (1)
  - Death [Fatal]
